FAERS Safety Report 25307960 (Version 1)
Quarter: 2025Q2

REPORT INFORMATION
  Report Type: Spontaneous
  Country: US (occurrence: US)
  Receive Date: 20250513
  Receipt Date: 20250513
  Transmission Date: 20250717
  Serious: No
  Sender: INCYTE
  Company Number: US-EVENT-002531

PATIENT
  Age: 70 Year

DRUGS (1)
  1. OPZELURA [Suspect]
     Active Substance: RUXOLITINIB PHOSPHATE
     Indication: Alopecia universalis
     Dosage: UNK, APPLY TO SCALP TWICE DAILY
     Route: 065

REACTIONS (5)
  - Hair growth abnormal [Unknown]
  - Rash pruritic [Not Recovered/Not Resolved]
  - Stress [Unknown]
  - Drug effective for unapproved indication [Unknown]
  - Off label use [Unknown]
